FAERS Safety Report 9846863 (Version 1)
Quarter: 2013Q4

REPORT INFORMATION
  Report Type: Spontaneous
  Country: US (occurrence: None)
  Receive Date: 20131219
  Receipt Date: 20131219
  Transmission Date: 20140711
  Serious: Yes (Death)
  Sender: FDA-Public Use
  Company Number: 163-20785-13071917

PATIENT
  Age: 71 Year
  Sex: Male

DRUGS (13)
  1. THALOMID [Suspect]
     Indication: PLASMA CELL MYELOMA
     Dosage: 200 MG ,  21 IN 28 D, PO  07JUN2013-08JUN2013  THERAPY DATES
     Route: 048
     Dates: start: 20130607, end: 20130708
  2. ALLOPURINOL (ALLOPURINOL) [Concomitant]
  3. DEXAMETHASONE (DEXAMETHASONE) [Concomitant]
  4. HYDROCHLOROTHIAZIDE (HYDROCHLOROTHIAZIDE) [Concomitant]
  5. LORATADINE (LORATADINE) (LORATADINE) [Concomitant]
  6. MAGNESIUM (MAGNESIUM) [Concomitant]
  7. METOPROLOL (METOPROLOL) [Concomitant]
  8. PANTOPRAZOLE (PANTOPRAZOLE) [Concomitant]
  9. RANITIDINE (RANITIDINE) [Concomitant]
  10. ZINC (ZIND) [Concomitant]
  11. VIT C [Concomitant]
  12. VIT B6 (PYRIDOXINE HYDROCHLORIDE) [Concomitant]
  13. VELCADE (BORTEZOMIB)? [Concomitant]

REACTIONS (1)
  - Death [None]
